FAERS Safety Report 14476737 (Version 1)
Quarter: 2018Q1

REPORT INFORMATION
  Report Type: Report from Study
  Country: US (occurrence: US)
  Receive Date: 20180201
  Receipt Date: 20180201
  Transmission Date: 20180509
  Serious: No
  Sender: FDA-Public Use
  Company Number: PHEH2018US004137

PATIENT
  Sex: Male

DRUGS (2)
  1. ENTRESTO [Suspect]
     Active Substance: SACUBITRIL\VALSARTAN
     Dosage: SACUBITRIL 49/VALSARTAN 51 MG
     Route: 065
  2. ENTRESTO [Suspect]
     Active Substance: SACUBITRIL\VALSARTAN
     Indication: PRODUCT USED FOR UNKNOWN INDICATION
     Dosage: SACUBITRIL 24/VALSARTAN 26 MG
     Route: 065

REACTIONS (5)
  - Dehydration [Unknown]
  - Arthropathy [Unknown]
  - Weight decreased [Unknown]
  - Hypotension [Unknown]
  - Blood cholesterol decreased [Not Recovered/Not Resolved]
